FAERS Safety Report 8479573-8 (Version None)
Quarter: 2012Q2

REPORT INFORMATION
  Report Type: 
  Country: None (occurrence: None)
  Receive Date: 20120629
  Receipt Date: 20120626
  Transmission Date: 20120825
  Serious: Yes (Disabling, Other)
  Sender: FDA-Public Use
  Company Number: US-CELGENEUS-163-21880-12041871

PATIENT
  Sex: Female

DRUGS (3)
  1. REVLIMID [Suspect]
     Indication: MULTIPLE MYELOMA
     Dosage: 25 MILLIGRAM
     Route: 048
     Dates: start: 20120302, end: 20120320
  2. VELCADE [Concomitant]
     Route: 058
     Dates: start: 20120302
  3. DEXAMETHASONE [Concomitant]
     Route: 048
     Dates: start: 20120302

REACTIONS (1)
  - OSTEOLYSIS [None]
